FAERS Safety Report 8902356 (Version 1)
Quarter: 2012Q4

REPORT INFORMATION
  Report Type: 
  Country: US (occurrence: US)
  Receive Date: 20121112
  Receipt Date: 20121112
  Transmission Date: 20130627
  Serious: No
  Sender: FDA-Public Use
  Company Number: US-009507513-1211USA000200

PATIENT
  Sex: Female

DRUGS (3)
  1. DULERA [Suspect]
     Indication: CHRONIC OBSTRUCTIVE PULMONARY DISEASE
     Dosage: 2 DF, qd
     Route: 055
  2. NEXIUM [Concomitant]
     Dosage: UNK
     Route: 048
  3. PRAVACHOL [Concomitant]

REACTIONS (1)
  - Vision blurred [Not Recovered/Not Resolved]
